FAERS Safety Report 23079182 (Version 1)
Quarter: 2023Q4

REPORT INFORMATION
  Report Type: Spontaneous
  Country: JP (occurrence: JP)
  Receive Date: 20231018
  Receipt Date: 20231018
  Transmission Date: 20240109
  Serious: Yes (Other)
  Sender: FDA-Public Use
  Company Number: None

PATIENT
  Age: 72 Year
  Sex: Male
  Weight: 64.7 kg

DRUGS (12)
  1. IDAMYCIN [Suspect]
     Active Substance: IDARUBICIN HYDROCHLORIDE
     Indication: Acute myeloid leukaemia
     Dosage: 12 MG/M2
     Route: 041
     Dates: start: 20230605, end: 20230607
  2. IDAMYCIN [Suspect]
     Active Substance: IDARUBICIN HYDROCHLORIDE
     Dosage: 20 MG X 1
     Route: 041
     Dates: start: 20230605, end: 20230607
  3. CYTARABINE [Suspect]
     Active Substance: CYTARABINE
     Indication: Acute myeloid leukaemia
     Dosage: 100 MG/M2
     Dates: start: 20230605, end: 20230607
  4. CYTARABINE [Suspect]
     Active Substance: CYTARABINE
     Dosage: 180 MG X1 (24-HOUR CONTINUOUS)
     Route: 041
     Dates: start: 20230605, end: 20230611
  5. APREPITANT [Concomitant]
     Active Substance: APREPITANT
     Dosage: UNK
  6. GRANISETRON [Concomitant]
     Active Substance: GRANISETRON
     Dosage: UNK
  7. DEXAMETHASONE SODIUM PHOSPHATE [Concomitant]
     Active Substance: DEXAMETHASONE SODIUM PHOSPHATE
     Dosage: UNK
  8. MICAFUNGIN [Concomitant]
     Active Substance: MICAFUNGIN SODIUM
     Dosage: UNK
  9. HERBALS [Concomitant]
     Active Substance: HERBALS
     Dosage: UNK
  10. FEBUXOSTAT [Concomitant]
     Active Substance: FEBUXOSTAT
     Dosage: UNK
  11. ESOMEPRAZOLE [Concomitant]
     Active Substance: ESOMEPRAZOLE
     Dosage: UNK
  12. MAGNESIUM OXIDE [Concomitant]
     Active Substance: MAGNESIUM OXIDE
     Dosage: UNK

REACTIONS (7)
  - Neutrophil count decreased [Recovered/Resolved]
  - Platelet count decreased [Recovering/Resolving]
  - White blood cell count decreased [Recovering/Resolving]
  - Haemoglobin decreased [Unknown]
  - Pneumonia [Unknown]
  - Mucormycosis [Unknown]
  - Pyrexia [Recovering/Resolving]

NARRATIVE: CASE EVENT DATE: 20230612
